FAERS Safety Report 7271853-7 (Version None)
Quarter: 2011Q1

REPORT INFORMATION
  Report Type: 
  Country: None (occurrence: None)
  Receive Date: 20110203
  Receipt Date: 20110125
  Transmission Date: 20110831
  Serious: Yes (Other)
  Sender: FDA-Public Use
  Company Number: US-JNJFOC-20060906180

PATIENT
  Sex: Female

DRUGS (2)
  1. ZOLOFT [Concomitant]
  2. RISPERDAL [Suspect]
     Indication: DEPRESSION

REACTIONS (1)
  - TYPE 2 DIABETES MELLITUS [None]
